FAERS Safety Report 13745247 (Version 2)
Quarter: 2017Q3

REPORT INFORMATION
  Report Type: Spontaneous
  Country: FR (occurrence: FR)
  Receive Date: 20170712
  Receipt Date: 20170905
  Transmission Date: 20171127
  Serious: Yes (Other)
  Sender: FDA-Public Use
  Company Number: FR-AMGEN-FRASP2017103954

PATIENT
  Age: 22 Year
  Sex: Male

DRUGS (2)
  1. METOJECT [Suspect]
     Active Substance: METHOTREXATE SODIUM
     Indication: ANKYLOSING SPONDYLITIS
     Dosage: 1 DF, QWK
     Route: 058
  2. ENBREL [Suspect]
     Active Substance: ETANERCEPT
     Indication: ANKYLOSING SPONDYLITIS
     Dosage: 50 MG, WEEKLY
     Route: 058
     Dates: start: 20161209, end: 201706

REACTIONS (1)
  - Iridocyclitis [Recovered/Resolved]

NARRATIVE: CASE EVENT DATE: 20170607
